FAERS Safety Report 10037153 (Version 3)
Quarter: 2014Q1

REPORT INFORMATION
  Report Type: Spontaneous
  Country: CH (occurrence: None)
  Receive Date: 20140324
  Receipt Date: 20140331
  Transmission Date: 20141002
  Serious: Yes (Other)
  Sender: FDA-Public Use
  Company Number: 2014AP002075

PATIENT
  Age: 42 Year
  Sex: Female

DRUGS (2)
  1. TOPIRAMATE [Suspect]
     Dosage: 400 MG, UNKNOWN, QD
  2. RISPERIDONE (RISPERIDONE) [Suspect]

REACTIONS (4)
  - Renal tubular acidosis [None]
  - Nephrolithiasis [None]
  - Metabolic acidosis [None]
  - Hypocitraturia [None]
